FAERS Safety Report 5281466-4 (Version None)
Quarter: 2007Q1

REPORT INFORMATION
  Report Type: 
  Country: None (occurrence: None)
  Receive Date: 20070330
  Receipt Date: 20070320
  Transmission Date: 20070707
  Serious: Yes (Hospitalization)
  Sender: FDA-Public Use
  Company Number: PHHO2007BR04862

PATIENT
  Age: 41 Year
  Sex: Female

DRUGS (2)
  1. CYCLOSPORINE [Suspect]
     Indication: RENAL TRANSPLANT
     Dosage: 300 MG
     Route: 048
     Dates: start: 20070224
  2. CYCLOSPORINE [Suspect]
     Dosage: DECREASED DOSE
     Dates: start: 20070306

REACTIONS (2)
  - COMPLICATIONS OF TRANSPLANTED KIDNEY [None]
  - RENAL TUBULAR DISORDER [None]
